FAERS Safety Report 15788058 (Version 2)
Quarter: 2019Q1

REPORT INFORMATION
  Report Type: Spontaneous
  Country: US (occurrence: US)
  Receive Date: 20190104
  Receipt Date: 20190216
  Transmission Date: 20190417
  Serious: Yes (Death)
  Sender: FDA-Public Use
  Company Number: US-IPSEN BIOPHARMACEUTICALS, INC.-2019-00099

PATIENT
  Sex: Male

DRUGS (13)
  1. LISINOPRIL. [Concomitant]
     Active Substance: LISINOPRIL
  2. SERTRALINE [Concomitant]
     Active Substance: SERTRALINE HYDROCHLORIDE
  3. SOMATULINE DEPOT [Suspect]
     Active Substance: LANREOTIDE ACETATE
     Indication: NEUROENDOCRINE TUMOUR
     Route: 058
  4. CITALOPRAM [Concomitant]
     Active Substance: CITALOPRAM HYDROBROMIDE
  5. MEGESTROL ACETATE. [Concomitant]
     Active Substance: MEGESTROL ACETATE
  6. LOMOTIL [Concomitant]
     Active Substance: ATROPINE SULFATE\DIPHENOXYLATE HYDROCHLORIDE
  7. TRAMADOL. [Concomitant]
     Active Substance: TRAMADOL
  8. FUROSEMIDE. [Concomitant]
     Active Substance: FUROSEMIDE
  9. PREDNISONE. [Concomitant]
     Active Substance: PREDNISONE
  10. TORSEMIDE. [Concomitant]
     Active Substance: TORSEMIDE
  11. OYSCO 500 [Concomitant]
     Dosage: 500
  12. POTASSIUM CHLORIDE. [Concomitant]
     Active Substance: POTASSIUM CHLORIDE
  13. OPDIVO [Concomitant]
     Active Substance: NIVOLUMAB

REACTIONS (3)
  - Cardiac failure congestive [Fatal]
  - Thrombocytopenia [Fatal]
  - Non-small cell lung cancer metastatic [Fatal]

NARRATIVE: CASE EVENT DATE: 2018
